FAERS Safety Report 7777474-1 (Version None)
Quarter: 2011Q3

REPORT INFORMATION
  Report Type: 
  Country: None (occurrence: None)
  Receive Date: 20110926
  Receipt Date: 20110922
  Transmission Date: 20111222
  Serious: No
  Sender: FDA-Public Use
  Company Number: US-TEVA-302123USA

PATIENT
  Sex: Female
  Weight: 78.088 kg

DRUGS (8)
  1. ESTROGEN NOS [Concomitant]
  2. ZOLPIDEM TARTRATE [Concomitant]
  3. BUPROPION [Concomitant]
  4. COPAXONE [Suspect]
     Indication: MULTIPLE SCLEROSIS
     Route: 058
  5. METHYLPREDNISOLONE [Concomitant]
  6. ALBUTEROL [Concomitant]
  7. IBANDRONATE SODIUM [Concomitant]
  8. SERETIDE                           /01420901/ [Concomitant]

REACTIONS (5)
  - URTICARIA [None]
  - PAIN [None]
  - SKIN IRRITATION [None]
  - INJECTION SITE REACTION [None]
  - ERYTHEMA [None]
